FAERS Safety Report 7131356-7 (Version None)
Quarter: 2010Q4

REPORT INFORMATION
  Report Type: 
  Country: None (occurrence: None)
  Receive Date: 20101201
  Receipt Date: 20100623
  Transmission Date: 20110411
  Serious: No
  Sender: FDA-Public Use
  Company Number: US-TYCO HEALTHCARE/MALLINCKRODT-T201001501

PATIENT
  Sex: Male

DRUGS (1)
  1. METHYLIN [Suspect]

REACTIONS (2)
  - AGITATION [None]
  - DRUG INEFFECTIVE [None]
